FAERS Safety Report 9245170 (Version 2)
Quarter: 2013Q2

REPORT INFORMATION
  Report Type: Report from Study
  Country: US (occurrence: US)
  Receive Date: 20130422
  Receipt Date: 20130503
  Transmission Date: 20140414
  Serious: Yes (Disabling, Other)
  Sender: FDA-Public Use
  Company Number: US-ACTELION-A-NJ2013-82091

PATIENT
  Age: 42 Year
  Sex: Female

DRUGS (9)
  1. TRACLEER [Suspect]
     Indication: PULMONARY ARTERIAL HYPERTENSION
     Dosage: UNK
     Route: 048
     Dates: start: 20010601
  2. COUMADIN [Concomitant]
  3. PREDNISONE [Concomitant]
  4. LEVOTHYROXINE [Concomitant]
  5. PROTONIX [Concomitant]
  6. PROMETRIUM [Concomitant]
  7. LIPITOR [Concomitant]
  8. SERTRALINE [Concomitant]
  9. CELEBREX [Concomitant]

REACTIONS (3)
  - Left ventricular failure [Not Recovered/Not Resolved]
  - Dyspnoea [Not Recovered/Not Resolved]
  - Walking distance test abnormal [Not Recovered/Not Resolved]
